FAERS Safety Report 7445448-6 (Version None)
Quarter: 2011Q2

REPORT INFORMATION
  Report Type: 
  Country: None (occurrence: None)
  Receive Date: 20110420
  Receipt Date: 20110413
  Transmission Date: 20111010
  Serious: Yes (Other)
  Sender: FDA-Public Use
  Company Number: CAP10000407

PATIENT
  Age: 71 Year
  Sex: Female
  Weight: 70.3 kg

DRUGS (12)
  1. CRESTOR [Concomitant]
  2. DICLOFENAC (DICLOFENAC) [Concomitant]
  3. ACTONEL [Suspect]
     Indication: OSTEOPOROSIS
     Dosage: 35 MG ONCE WEEKLY, ORAL
     Route: 048
     Dates: start: 20090401, end: 20101001
  4. CALCIUM (CALCIUM) [Concomitant]
  5. ERGOCALCIFEROL [Concomitant]
  6. AVAPRO [Concomitant]
  7. PREMARIN [Suspect]
     Dates: start: 19860101, end: 20100512
  8. AVALIDE [Concomitant]
  9. ASPIRIN [Concomitant]
  10. PREVACID [Concomitant]
  11. MAGNESIUM (MAGNESIUM) [Concomitant]
  12. VITAMIN C /00008001/ (ASCORBIC ACID) [Concomitant]

REACTIONS (17)
  - OESOPHAGEAL PAIN [None]
  - BONE DENSITY DECREASED [None]
  - INTERVERTEBRAL DISC SPACE NARROWING [None]
  - VOMITING [None]
  - BREAST CANCER STAGE I [None]
  - CHEST DISCOMFORT [None]
  - FEELING ABNORMAL [None]
  - FATIGUE [None]
  - DEPRESSION [None]
  - OESTROGEN RECEPTOR ASSAY POSITIVE [None]
  - OSTEOPOROSIS [None]
  - BLOOD GLUCOSE ABNORMAL [None]
  - NAUSEA [None]
  - GLUCOSE TOLERANCE IMPAIRED [None]
  - SPINAL OSTEOARTHRITIS [None]
  - DRUG INEFFECTIVE [None]
  - PROGESTERONE RECEPTOR ASSAY POSITIVE [None]
